FAERS Safety Report 4998005-5 (Version None)
Quarter: 2006Q2

REPORT INFORMATION
  Report Type: 
  Country: None (occurrence: None)
  Receive Date: 20060510
  Receipt Date: 20060223
  Transmission Date: 20061013
  Serious: Yes (Hospitalization)
  Sender: FDA-Public Use
  Company Number: 2006PK00689

PATIENT
  Age: 678 Month
  Sex: Female
  Weight: 71 kg

DRUGS (2)
  1. TAMOXIFEN CITRATE [Suspect]
     Indication: BREAST CANCER
     Route: 048
     Dates: start: 20050901, end: 20060105
  2. BLOPRESS PLUS [Concomitant]
     Indication: HYPERTENSION
     Route: 048
     Dates: start: 20040101

REACTIONS (2)
  - DERMATITIS EXFOLIATIVE [None]
  - PUSTULAR PSORIASIS [None]
